FAERS Safety Report 23026923 (Version 1)
Quarter: 2023Q4

REPORT INFORMATION
  Report Type: Report from Study
  Country: FR (occurrence: FR)
  Receive Date: 20231004
  Receipt Date: 20231004
  Transmission Date: 20240109
  Serious: Yes (Other)
  Sender: FDA-Public Use
  Company Number: FR-ELI_LILLY_AND_COMPANY-FR202304003556

PATIENT

DRUGS (2)
  1. PEMETREXED [Suspect]
     Active Substance: PEMETREXED
     Indication: Neoplasm malignant
     Dosage: 500 MILLIGRAM/SQ. METER (500 MG/M2, UNKNOWN)
     Route: 065
  2. CYANOCOBALAMIN\FOLIC ACID [Concomitant]
     Active Substance: CYANOCOBALAMIN\FOLIC ACID
     Indication: Drug toxicity prophylaxis
     Dosage: UNK, UNKNOWN
     Route: 065

REACTIONS (2)
  - Decreased appetite [Unknown]
  - Toxicity to various agents [Unknown]
